FAERS Safety Report 19061447 (Version 9)
Quarter: 2022Q4

REPORT INFORMATION
  Report Type: Report from Study
  Country: US (occurrence: US)
  Receive Date: 20210325
  Receipt Date: 20221212
  Transmission Date: 20230113
  Serious: Yes (Hospitalization)
  Sender: FDA-Public Use
  Company Number: US-GILEAD-2019-0422443

PATIENT
  Age: 68 Year
  Sex: Male

DRUGS (54)
  1. AXICABTAGENE CILOLEUCEL [Suspect]
     Active Substance: AXICABTAGENE CILOLEUCEL
     Indication: Diffuse large B-cell lymphoma
     Dosage: ^68^
     Route: 042
     Dates: start: 20181226, end: 20181226
  2. FLUDARABINE [Suspect]
     Active Substance: FLUDARABINE PHOSPHATE
     Indication: Bone marrow conditioning regimen
     Dosage: 30 MG/M2
     Route: 042
     Dates: start: 20181221, end: 20181223
  3. CYCLOPHOSPHAMIDE [Suspect]
     Active Substance: CYCLOPHOSPHAMIDE
     Indication: Bone marrow conditioning regimen
     Dosage: 500 MG/M2
     Route: 042
     Dates: start: 20181221, end: 20181223
  4. LEVETIRACETAM [Concomitant]
     Active Substance: LEVETIRACETAM
     Dosage: 750,MG,TWICE DAILY
     Route: 048
     Dates: start: 20181225
  5. LEVETIRACETAM [Concomitant]
     Active Substance: LEVETIRACETAM
     Dosage: 750,MG,TWICE DAILY
     Route: 048
     Dates: start: 20181225, end: 20190125
  6. FLUCONAZOLE [Concomitant]
     Active Substance: FLUCONAZOLE
     Dosage: 400,MG,DAILY
     Route: 048
     Dates: start: 20181226
  7. LORATADINE [Concomitant]
     Active Substance: LORATADINE
     Dosage: 10,MG,DAILY
     Route: 048
     Dates: start: 20181226
  8. LORATADINE [Concomitant]
     Active Substance: LORATADINE
     Dosage: 10,MG,DAILY
     Route: 048
     Dates: start: 20181121
  9. ACYCLOVIR [Concomitant]
     Active Substance: ACYCLOVIR
     Dosage: 800,MG,TWICE DAILY
     Route: 048
     Dates: start: 20181226
  10. ALLOPURINOL [Concomitant]
     Active Substance: ALLOPURINOL
     Dosage: 300,MG,DAILY
     Route: 048
     Dates: start: 20181226
  11. ALLOPURINOL [Concomitant]
     Active Substance: ALLOPURINOL
     Dosage: 300,MG,DAILY
     Route: 048
     Dates: start: 20181226, end: 20190105
  12. PANTOPRAZOLE [Concomitant]
     Active Substance: PANTOPRAZOLE
     Dosage: 40,MG,DAILY
     Route: 048
     Dates: start: 20181227
  13. PANTOPRAZOLE [Concomitant]
     Active Substance: PANTOPRAZOLE
     Dosage: 40,MG,DAILY
     Route: 048
     Dates: start: 20191130, end: 20191202
  14. PANTOPRAZOLE [Concomitant]
     Active Substance: PANTOPRAZOLE
     Dosage: 40,MG,DAILY
     Route: 048
     Dates: start: 20181128
  15. CIPROFLOXACIN [Concomitant]
     Active Substance: CIPROFLOXACIN
     Dosage: 500,MG,TWICE DAILY
     Route: 048
     Dates: start: 20190104
  16. CIPROFLOXACIN [Concomitant]
     Active Substance: CIPROFLOXACIN
     Dosage: 500,MG,TWICE DAILY
     Route: 048
     Dates: start: 20181226, end: 20181226
  17. CIPROFLOXACIN [Concomitant]
     Active Substance: CIPROFLOXACIN
     Dosage: 500,MG,ONCE
     Route: 048
     Dates: start: 20181227, end: 20181227
  18. CIPROFLOXACIN [Concomitant]
     Active Substance: CIPROFLOXACIN
     Dosage: 500,MG,TWICE DAILY
     Route: 048
     Dates: start: 20190104, end: 20190105
  19. PENTAMIDINE [Concomitant]
     Active Substance: PENTAMIDINE
     Dosage: 300,MG,ONCE
     Route: 055
     Dates: start: 20190821, end: 20190821
  20. PENTAMIDINE [Concomitant]
     Active Substance: PENTAMIDINE
     Dosage: 300,MG,ONCE
     Route: 055
     Dates: start: 20190131, end: 20190131
  21. PENTAMIDINE [Concomitant]
     Active Substance: PENTAMIDINE
     Dosage: 300,MG,ONCE
     Route: 055
     Dates: start: 20190226, end: 20190226
  22. PENTAMIDINE [Concomitant]
     Active Substance: PENTAMIDINE
     Dosage: 300,MG,ONCE
     Route: 055
     Dates: start: 20190329, end: 20190329
  23. PENTAMIDINE [Concomitant]
     Active Substance: PENTAMIDINE
     Dosage: 300,MG,ONCE
     Route: 055
     Dates: start: 20190426, end: 20190426
  24. PENTAMIDINE [Concomitant]
     Active Substance: PENTAMIDINE
     Dosage: 300,MG,ONCE
     Route: 055
     Dates: start: 20190524, end: 20190524
  25. PENTAMIDINE [Concomitant]
     Active Substance: PENTAMIDINE
     Dosage: 300,MG,ONCE
     Route: 055
     Dates: start: 20190621, end: 20190621
  26. PENTAMIDINE [Concomitant]
     Active Substance: PENTAMIDINE
     Dosage: 300,MG,ONCE
     Route: 055
     Dates: start: 20190719, end: 20190719
  27. TIOTROPIUM [Concomitant]
     Active Substance: TIOTROPIUM
     Dosage: 5,UG,DAILY
     Route: 055
     Dates: start: 20190104
  28. HUMALOG [Concomitant]
     Active Substance: INSULIN LISPRO
     Dosage: 10,OTHER,AS NECESSARY
     Route: 058
     Dates: start: 20191122
  29. IPRATROPIUM [Concomitant]
     Active Substance: IPRATROPIUM
     Dosage: 2,OTHER,TWICE DAILY
     Route: 045
     Dates: start: 20190627
  30. MONTELUKAST [Concomitant]
     Active Substance: MONTELUKAST SODIUM
     Dosage: 10,MG,DAILY
     Route: 048
     Dates: start: 20191128
  31. FLUTICASONE PROPIONATE\SALMETEROL XINAFOATE [Concomitant]
     Active Substance: FLUTICASONE PROPIONATE\SALMETEROL XINAFOATE
     Dosage: 1,OTHER,TWICE DAILY
     Route: 055
     Dates: start: 20191128
  32. GUAIFENESIN AND DEXTROMETHORPHAN [Concomitant]
     Active Substance: DEXTROMETHORPHAN\GUAIFENESIN
     Dosage: 10,ML,AS NEEDED
     Route: 048
     Dates: start: 20191121
  33. CALCIUM GLUCONATE [Concomitant]
     Active Substance: CALCIUM GLUCONATE
     Dosage: 5,G,ONCE
     Route: 042
     Dates: start: 20181203, end: 20181203
  34. CEFAZOLIN [Concomitant]
     Active Substance: CEFAZOLIN
     Dosage: 2,G,ONCE
     Route: 042
     Dates: start: 20181220, end: 20181220
  35. PALONOSETRON [Concomitant]
     Active Substance: PALONOSETRON
     Dosage: 0.25,MG,ONCE
     Route: 042
     Dates: start: 20181221, end: 20181221
  36. PROCHLORPERAZINE [Concomitant]
     Active Substance: PROCHLORPERAZINE
     Dosage: 10,MG,DAILY
     Route: 048
     Dates: start: 20181221, end: 20181223
  37. LACTULOSE [Concomitant]
     Active Substance: LACTULOSE
     Dosage: 15,ML,ONCE
     Route: 048
     Dates: start: 20181223, end: 20181223
  38. MAGNESIUM [Concomitant]
     Active Substance: MAGNESIUM
     Dosage: 266,MG,ONCE
     Route: 048
     Dates: start: 20181224, end: 20181224
  39. MAGNESIUM [Concomitant]
     Active Substance: MAGNESIUM
     Dosage: 266,MG,ONCE
     Route: 048
     Dates: start: 20190108, end: 20190108
  40. ACETAMINOPHEN [Concomitant]
     Active Substance: ACETAMINOPHEN
     Dosage: 650,MG,DAILY
     Route: 048
     Dates: start: 20181226, end: 20181229
  41. ACETAMINOPHEN [Concomitant]
     Active Substance: ACETAMINOPHEN
     Dosage: 650,MG,TWICE DAILY
     Route: 048
     Dates: start: 20181230, end: 20181231
  42. DIPHENHYDRAMINE [Concomitant]
     Active Substance: DIPHENHYDRAMINE
     Dosage: 25,MG,ONCE
     Route: 042
     Dates: start: 20181226, end: 20181226
  43. HUMAN RED BLOOD CELL [Concomitant]
     Active Substance: HUMAN RED BLOOD CELL
     Dosage: 500,ML,ONCE
     Route: 042
     Dates: start: 20181226, end: 20181226
  44. HUMAN RED BLOOD CELL [Concomitant]
     Active Substance: HUMAN RED BLOOD CELL
     Dosage: 305,ML,ONCE
     Route: 042
     Dates: start: 20190101, end: 20190101
  45. HUMAN RED BLOOD CELL [Concomitant]
     Active Substance: HUMAN RED BLOOD CELL
     Dosage: UN,ML,ONCE
     Route: 042
     Dates: start: 20190103, end: 20190103
  46. OXYCODONE [Concomitant]
     Active Substance: OXYCODONE
     Dosage: 5,MG,TWICE DAILY
     Route: 048
     Dates: start: 20181227, end: 20181228
  47. TRAMADOL [Concomitant]
     Active Substance: TRAMADOL
     Dosage: 50,MG,AS NECESSARY
     Route: 048
     Dates: start: 20181229, end: 20181230
  48. TRAMADOL [Concomitant]
     Active Substance: TRAMADOL
     Dosage: 75,MG,OTHER
     Route: 048
     Dates: start: 20181230, end: 20190105
  49. TRAMADOL [Concomitant]
     Active Substance: TRAMADOL
     Dosage: 75,MG,ONCE
     Route: 048
     Dates: start: 20190107, end: 20190107
  50. DEXTROMETHORPHAN [Concomitant]
     Active Substance: DEXTROMETHORPHAN
     Dosage: 60,MG,ONCE
     Route: 048
     Dates: start: 20190103, end: 20190103
  51. MODERNA COVID-19 VACCINE [Concomitant]
     Active Substance: ELASOMERAN
     Dosage: 100 UG, ONCE
     Route: 030
     Dates: start: 20210217, end: 20210217
  52. OXYGEN [Concomitant]
     Active Substance: OXYGEN
     Dosage: 2 L AT NIGHT AT HOME
  53. OXYGEN [Concomitant]
     Active Substance: OXYGEN
     Dosage: 4 LITER IN ER
  54. VANCOMYCIN [Concomitant]
     Active Substance: VANCOMYCIN
     Dosage: 10-20,ML,CONTINUOUS
     Route: 042
     Dates: start: 20220603, end: 20220603

REACTIONS (3)
  - Pneumocystis jirovecii pneumonia [Recovered/Resolved with Sequelae]
  - Pneumonia [Recovered/Resolved]
  - Pneumonia [Recovered/Resolved]

NARRATIVE: CASE EVENT DATE: 20210307
